FAERS Safety Report 9249906 (Version 1)
Quarter: 2013Q2

REPORT INFORMATION
  Report Type: Spontaneous
  Country: US (occurrence: US)
  Receive Date: 20130423
  Receipt Date: 20130423
  Transmission Date: 20140414
  Serious: No
  Sender: FDA-Public Use
  Company Number: US-009507513-1304USA008756

PATIENT
  Age: 25 Year
  Sex: Female
  Weight: 53.52 kg

DRUGS (1)
  1. NUVARING [Suspect]
     Indication: CONTRACEPTION
     Dosage: 1 RING FOR 3 WEEKS FOLLOWED BY AWEEK FREE BREAK
     Route: 067
     Dates: start: 201110

REACTIONS (7)
  - Nausea [Unknown]
  - Dysmenorrhoea [Unknown]
  - Acne [Unknown]
  - Vulvovaginal discomfort [Unknown]
  - Vaginal discharge [Unknown]
  - Adverse event [Unknown]
  - Product quality issue [Unknown]
